FAERS Safety Report 24322537 (Version 1)
Quarter: 2024Q3

REPORT INFORMATION
  Report Type: Spontaneous
  Country: US (occurrence: US)
  Receive Date: 20240916
  Receipt Date: 20240916
  Transmission Date: 20241017
  Serious: No
  Sender: ALVOGEN
  Company Number: US-ALVOGEN-2024094880

PATIENT
  Sex: Female

DRUGS (3)
  1. AMPHETAMINE [Suspect]
     Active Substance: AMPHETAMINE
     Indication: Attention deficit hyperactivity disorder
     Dosage: SECOND TIME IN TWO YEARS?STRENGTH: 30 MG?60 TABLETS GIVEN, 30 DAY SUPPLY
     Dates: start: 20240603
  2. AMPHETAMINE [Suspect]
     Active Substance: AMPHETAMINE
     Indication: Attention deficit hyperactivity disorder
     Dosage: SECOND TIME IN TWO YEARS?AMOUNT 1/4 OF A TABLET A DAY
     Dates: start: 20240603
  3. AMPHETAMINE [Suspect]
     Active Substance: AMPHETAMINE
     Indication: Attention deficit hyperactivity disorder
     Dosage: FIRST TIME IN TWO YEARS
     Dates: start: 2022

REACTIONS (7)
  - Disturbance in attention [Not Recovered/Not Resolved]
  - Attention deficit hyperactivity disorder [Not Recovered/Not Resolved]
  - Condition aggravated [Not Recovered/Not Resolved]
  - Depression [Not Recovered/Not Resolved]
  - Drug ineffective [Unknown]
  - Intentional product use issue [Unknown]
  - Product dispensing error [Unknown]

NARRATIVE: CASE EVENT DATE: 20220101
